FAERS Safety Report 9641973 (Version 2)
Quarter: 2013Q4

REPORT INFORMATION
  Report Type: Spontaneous
  Country: US (occurrence: US)
  Receive Date: 20131023
  Receipt Date: 20131107
  Transmission Date: 20140711
  Serious: Yes (Other)
  Sender: FDA-Public Use
  Company Number: US-MYLANLABS-2013S1023342

PATIENT
  Age: 53 Year
  Sex: Female

DRUGS (20)
  1. LACTULOSE [Suspect]
     Indication: CONSTIPATION
     Dates: start: 20120717, end: 20130921
  2. LANSOPRAZOLE DELAYED-RELEASE CAPSULES, USP [Suspect]
     Dates: start: 20130528, end: 20130928
  3. FLUTICASONE PROPIONATE [Concomitant]
     Dosage: 50MCG SPRAY
     Dates: start: 20120922
  4. PREDNISONE [Concomitant]
     Dates: start: 20120928
  5. CITALOPRAM HYDROBROMIDE [Concomitant]
     Dosage: 10MG TABLET
     Dates: start: 20120723
  6. MONTELUKAST SODIUM [Concomitant]
     Dosage: 10MG TABLET
     Dates: start: 20130404
  7. AMOXICILLIN + CLAVULANIC ACID [Concomitant]
     Dosage: 875MG/125MG
     Dates: start: 20130814
  8. AMOXICILLIN [Concomitant]
     Dates: start: 20121005
  9. AZITHROMYCIN [Concomitant]
     Dosage: 250MG DOSE PACK
     Dates: start: 20130301
  10. CYCLOBENZAPRINE [Concomitant]
     Dosage: 10MG TABLET
     Dates: start: 20130530
  11. FLUZONE /00027001/ [Concomitant]
     Dates: start: 20130908
  12. OMEPRAZOLE [Concomitant]
     Dates: start: 20121009
  13. OXYCODONE AND ACETAMINOPHEN [Concomitant]
     Dosage: 5MG/325MG
     Dates: start: 20120709
  14. OXYCODONE HYDROCHLORIDE [Concomitant]
     Dosage: 5MG TABLET
     Dates: start: 20120704
  15. PROAIR HFA [Concomitant]
     Dosage: 90MCG INHALER
     Dates: start: 20120826
  16. SYMBICORT [Concomitant]
     Dates: start: 20120925
  17. TRAMADOL HYDROCHLORIDE [Concomitant]
     Dosage: 50MG TABLET
     Dates: start: 20130802
  18. LEVOFLOXACIN [Concomitant]
     Dosage: 500MG TABLET
     Dates: start: 20120704
  19. LORATADINE [Concomitant]
     Dosage: 10MG TABLET
     Dates: start: 20130911
  20. METHYLPREDNISOLONE [Concomitant]
     Dosage: 4MG DOSE PACK
     Dates: start: 20120907

REACTIONS (9)
  - Helminthic infection [Not Recovered/Not Resolved]
  - Bite [Not Recovered/Not Resolved]
  - Back pain [Not Recovered/Not Resolved]
  - Pruritus [Not Recovered/Not Resolved]
  - Sensation of foreign body [Recovering/Resolving]
  - Joint lock [Recovering/Resolving]
  - Muscle spasms [Recovering/Resolving]
  - Inflammation [Recovering/Resolving]
  - Foreign body [Not Recovered/Not Resolved]
